FAERS Safety Report 7416403-7 (Version None)
Quarter: 2011Q2

REPORT INFORMATION
  Report Type: 
  Country: None (occurrence: None)
  Receive Date: 20110414
  Receipt Date: 20110405
  Transmission Date: 20111010
  Serious: Yes (Other)
  Sender: FDA-Public Use
  Company Number: US-ASTRAZENECA-2011SE19430

PATIENT
  Age: 62 Year
  Sex: Female

DRUGS (6)
  1. VIMOVO [Suspect]
     Route: 048
  2. AMBIEN [Concomitant]
  3. NIASPAN [Concomitant]
  4. ZOLOFT [Concomitant]
  5. BENECAR HCTZ [Concomitant]
  6. ZYRTEC [Concomitant]

REACTIONS (1)
  - WEIGHT INCREASED [None]
